FAERS Safety Report 13054687 (Version 3)
Quarter: 2018Q2

REPORT INFORMATION
  Report Type: Report from Study
  Country: CA (occurrence: CA)
  Receive Date: 20161222
  Receipt Date: 20180613
  Transmission Date: 20180711
  Serious: Yes (Other)
  Sender: FDA-Public Use
  Company Number: PHHY2016CA175573

PATIENT
  Sex: Female

DRUGS (3)
  1. SANDOSTATIN LAR DEPOT [Suspect]
     Active Substance: OCTREOTIDE ACETATE
     Indication: CARCINOID TUMOUR
     Dosage: 20 MG, QMO
     Route: 030
     Dates: start: 20130416, end: 2013
  2. SANDOSTATIN LAR DEPOT [Suspect]
     Active Substance: OCTREOTIDE ACETATE
     Dosage: 30 MG, QMO
     Route: 030
     Dates: start: 2013
  3. SANDOSTATIN [Suspect]
     Active Substance: OCTREOTIDE ACETATE
     Indication: CARCINOID TUMOUR
     Dosage: UNK, TID (3 TIMES A DAY)
     Route: 058
     Dates: start: 2016

REACTIONS (2)
  - Muscle haemorrhage [Unknown]
  - Injection site pain [Unknown]

NARRATIVE: CASE EVENT DATE: 2016
